FAERS Safety Report 13429582 (Version 1)
Quarter: 2017Q2

REPORT INFORMATION
  Report Type: Spontaneous
  Country: US (occurrence: US)
  Receive Date: 20170412
  Receipt Date: 20170412
  Transmission Date: 20170830
  Serious: Yes (Other)
  Sender: FDA-Public Use
  Company Number: US-ASTRAZENECA-2017SE35125

PATIENT

DRUGS (2)
  1. TUMS [Suspect]
     Active Substance: CALCIUM CARBONATE
     Indication: DYSPEPSIA
     Dosage: EVERY DAY
     Route: 065
  2. NEXIUM [Suspect]
     Active Substance: ESOMEPRAZOLE MAGNESIUM
     Indication: DYSPEPSIA
     Dosage: UNK
     Route: 048

REACTIONS (1)
  - Cardiac failure [Unknown]
